FAERS Safety Report 5008176-2 (Version None)
Quarter: 2006Q2

REPORT INFORMATION
  Report Type: 
  Country: None (occurrence: None)
  Receive Date: 20060404
  Receipt Date: 20051208
  Transmission Date: 20061013
  Serious: Yes (Other)
  Sender: FDA-Public Use
  Company Number: 2005166328

PATIENT
  Age: 58 Year
  Sex: Male
  Weight: 120.2032 kg

DRUGS (2)
  1. GEODON [Suspect]
     Indication: CONVULSION
     Dosage: 80 MG (80 MG, 1 IN 1 D)
     Dates: start: 20040101
  2. DEPAKOTE [Suspect]
     Indication: ILL-DEFINED DISORDER
     Dates: end: 20050101

REACTIONS (6)
  - CONVULSION [None]
  - DRUG ABUSER [None]
  - PAIN [None]
  - SEMEN ABNORMAL [None]
  - SEXUAL DYSFUNCTION [None]
  - UNEVALUABLE EVENT [None]
